FAERS Safety Report 10043332 (Version 1)
Quarter: 2014Q1

REPORT INFORMATION
  Report Type: Spontaneous
  Country: US (occurrence: None)
  Receive Date: 20140327
  Receipt Date: 20140327
  Transmission Date: 20141002
  Serious: Yes (Disabling)
  Sender: FDA-Public Use
  Company Number: None

PATIENT
  Age: 48 Year
  Sex: Female
  Weight: 54.43 kg

DRUGS (1)
  1. PAXIL [Suspect]
     Indication: MENOPAUSE
     Dosage: VARIES AS I WITHDRAW
     Route: 048

REACTIONS (1)
  - Drug withdrawal syndrome [None]
